FAERS Safety Report 5833940-7 (Version None)
Quarter: 2008Q3

REPORT INFORMATION
  Report Type: 
  Country: None (occurrence: None)
  Receive Date: 20080805
  Receipt Date: 20080729
  Transmission Date: 20090109
  Serious: Yes (Hospitalization)
  Sender: FDA-Public Use
  Company Number: B0531797A

PATIENT
  Age: 33 Year
  Sex: Female

DRUGS (4)
  1. COMBIVIR [Suspect]
     Indication: HIV INFECTION
     Dosage: 1TAB TWICE PER DAY
     Route: 048
     Dates: start: 20030722
  2. TENOFOVIR [Suspect]
     Indication: HIV INFECTION
     Dosage: 300MG PER DAY
     Route: 048
     Dates: start: 20030722
  3. STAVUDINE [Concomitant]
     Dates: start: 20031121
  4. LAMIVUDINE [Concomitant]
     Dates: start: 20031121

REACTIONS (2)
  - BODY TEMPERATURE FLUCTUATION [None]
  - PANCYTOPENIA [None]
